FAERS Safety Report 20533452 (Version 1)
Quarter: 2022Q1

REPORT INFORMATION
  Report Type: Spontaneous
  Country: US (occurrence: US)
  Receive Date: 20220301
  Receipt Date: 20220301
  Transmission Date: 20220424
  Serious: No
  Sender: FDA-Public Use
  Company Number: US-MIRM-000239

PATIENT
  Age: 10 Year
  Sex: Male
  Weight: 27.669 kg

DRUGS (4)
  1. LIVMARLI [Suspect]
     Active Substance: MARALIXIBAT CHLORIDE
     Indication: Pruritus
     Route: 048
     Dates: start: 20211208
  2. 1262333 (GLOBALC3Sep19): Aspirin 81 [Concomitant]
     Indication: Product used for unknown indication
     Route: 048
  3. 1776253 (GLOBALC3Sep19): Vitamin D [Concomitant]
     Indication: Product used for unknown indication
     Route: 048
  4. 2382297 (GLOBALC3Sep19): Multivitamin [Concomitant]
     Indication: Product used for unknown indication
     Route: 048

REACTIONS (5)
  - Constipation [Recovered/Resolved]
  - Abdominal pain upper [Recovered/Resolved]
  - Diarrhoea [Recovered/Resolved]
  - Abdominal pain [Recovered/Resolved]
  - Flatulence [Recovered/Resolved]

NARRATIVE: CASE EVENT DATE: 20211208
